FAERS Safety Report 13404723 (Version 1)
Quarter: 2017Q2

REPORT INFORMATION
  Report Type: Spontaneous
  Country: US (occurrence: US)
  Receive Date: 20170405
  Receipt Date: 20170405
  Transmission Date: 20170830
  Serious: Yes (Disabling, Other)
  Sender: FDA-Public Use
  Company Number: None

PATIENT
  Age: 71 Year
  Sex: Female
  Weight: 81.19 kg

DRUGS (10)
  1. NASONEX [Concomitant]
     Active Substance: MOMETASONE FUROATE
  2. 81MG ASPIRIN [Concomitant]
  3. CITALOPRAM [Concomitant]
     Active Substance: CITALOPRAM HYDROBROMIDE
  4. AREDS II [Concomitant]
  5. CARVEDILOL (BLUE POINT) [Concomitant]
  6. SOTOLOL [Concomitant]
     Active Substance: SOTALOL
  7. CENTRUM SILVER WOMEN 50+ [Concomitant]
  8. TYLENOL EXTRA STRENGTH [Concomitant]
     Active Substance: ACETAMINOPHEN
  9. 3.125MG CARVEDILOL BY SOLCO [Suspect]
     Active Substance: CARVEDILOL
     Indication: MUSCLE SPASMS
     Dosage: FREQUENCY - INITIALLY BID + THEN QD
     Route: 048
     Dates: start: 20170201, end: 20170316
  10. OMEPRAZOLE. [Concomitant]
     Active Substance: OMEPRAZOLE

REACTIONS (5)
  - Hunger [None]
  - Weight increased [None]
  - Blood pressure inadequately controlled [None]
  - Arthralgia [None]
  - Product substitution issue [None]

NARRATIVE: CASE EVENT DATE: 20170201
